FAERS Safety Report 14135616 (Version 2)
Quarter: 2017Q4

REPORT INFORMATION
  Report Type: Report from Study
  Country: US (occurrence: US)
  Receive Date: 20171026
  Receipt Date: 20171212
  Transmission Date: 20180321
  Serious: Yes (Death, Life-Threatening, Hospitalization, Other)
  Sender: FDA-Public Use
  Company Number: US-TAKEDA-2017MPI008332

PATIENT
  Age: 85 Year
  Sex: Female
  Weight: 93 kg

DRUGS (3)
  1. VEDOLIZUMAB [Suspect]
     Active Substance: VEDOLIZUMAB
     Indication: METASTATIC MALIGNANT MELANOMA
     Dosage: 450 MG, UNK
     Route: 042
     Dates: start: 20170720, end: 20170817
  2. NIVOLUMAB [Suspect]
     Active Substance: NIVOLUMAB
     Indication: METASTATIC MALIGNANT MELANOMA
     Dosage: 100 MG, UNK
     Route: 042
     Dates: start: 20170720, end: 20170921
  3. IPILIMUMAB [Suspect]
     Active Substance: IPILIMUMAB
     Indication: METASTATIC MALIGNANT MELANOMA
     Dosage: 300 MG, Q3WEEKS
     Route: 042
     Dates: start: 20170720, end: 20170921

REACTIONS (2)
  - Metastatic malignant melanoma [Fatal]
  - Acute coronary syndrome [Fatal]

NARRATIVE: CASE EVENT DATE: 20170926
